FAERS Safety Report 6176760-9 (Version None)
Quarter: 2009Q2

REPORT INFORMATION
  Report Type: 
  Country: None (occurrence: None)
  Receive Date: 20090501
  Receipt Date: 20080627
  Transmission Date: 20091009
  Serious: Yes (Hospitalization)
  Sender: FDA-Public Use
  Company Number: US-ALEXION-A200800055

PATIENT

DRUGS (20)
  1. SOLIRIS [Suspect]
     Indication: PAROXYSMAL NOCTURNAL HAEMOGLOBINURIA
     Dosage: 900 MG, SINGLE
     Route: 042
     Dates: start: 20070520, end: 20070520
  2. SOLIRIS [Suspect]
     Dosage: 900 MG, SINGLE
     Route: 042
     Dates: start: 20071118, end: 20071118
  3. SOLIRIS [Suspect]
     Dosage: 900 MG, SINGLE
     Route: 042
     Dates: start: 20071123, end: 20071123
  4. SOLIRIS [Suspect]
     Dosage: 900 MG, SINGLE
     Route: 042
     Dates: start: 20071130, end: 20071130
  5. SOLIRIS [Suspect]
     Dosage: 900 MG, SINGLE
     Route: 042
     Dates: start: 20071207, end: 20071207
  6. SOLIRIS [Suspect]
     Dosage: 900 MG, SINGLE
     Route: 042
     Dates: start: 20071214, end: 20071214
  7. SOLIRIS [Suspect]
     Dosage: 900 MG, SINGLE
     Route: 042
     Dates: start: 20071221, end: 20071221
  8. SOLIRIS [Suspect]
     Dosage: 900 MG, SINGLE
     Route: 042
     Dates: start: 20071228, end: 20071228
  9. SOLIRIS [Suspect]
     Dosage: 900 MG, SINGLE
     Route: 042
     Dates: start: 20080104, end: 20080104
  10. SOLIRIS [Suspect]
     Dosage: 1200 MG, SINGLE
     Route: 042
     Dates: start: 20080111, end: 20080111
  11. SOLIRIS [Suspect]
     Dosage: 1200 MG, SINGLE
     Route: 042
     Dates: start: 20080125, end: 20080125
  12. SOLIRIS [Suspect]
     Dosage: 1200 MG, SINGLE
     Route: 042
     Dates: start: 20080208, end: 20080208
  13. SOLIRIS [Suspect]
     Dosage: 1200 MG, SINGLE
     Route: 042
     Dates: start: 20080222, end: 20080222
  14. SOLIRIS [Suspect]
     Dosage: 1200 MG, SINGLE
     Route: 042
     Dates: start: 20080307, end: 20080307
  15. SOLIRIS [Suspect]
     Dosage: 1200 MG, SINGLE
     Route: 042
     Dates: start: 20080321, end: 20080321
  16. SOLIRIS [Suspect]
     Dosage: 1200 MG, SINGLE
     Route: 042
     Dates: start: 20080404, end: 20080404
  17. SOLIRIS [Suspect]
     Dosage: 1200 MG, SINGLE
     Route: 042
     Dates: start: 20080421, end: 20080421
  18. SOLIRIS [Suspect]
     Dosage: 1200 MG, SINGLE
     Route: 042
     Dates: start: 20080507, end: 20080507
  19. SOLIRIS [Suspect]
     Dosage: 1200 MG, SINGLE
     Route: 042
     Dates: start: 20080521, end: 20080521
  20. SOLIRIS [Suspect]
     Dosage: 1200 MG, SINGLE
     Route: 042
     Dates: start: 20080604, end: 20080604

REACTIONS (4)
  - ABDOMINAL PAIN UPPER [None]
  - CHOLELITHIASIS [None]
  - HAEMOLYSIS [None]
  - PANCREATITIS [None]
